APPROVED DRUG PRODUCT: CASPOFUNGIN ACETATE
Active Ingredient: CASPOFUNGIN ACETATE
Strength: 70MG/VIAL
Dosage Form/Route: POWDER;INTRAVENOUS
Application: N206110 | Product #002 | TE Code: AP
Applicant: FRESENIUS KABI USA LLC
Approved: Dec 30, 2016 | RLD: No | RS: No | Type: RX

PATENTS:
Patent 9636407 | Expires: Dec 21, 2032